FAERS Safety Report 8803702 (Version 1)
Quarter: 2012Q4

REPORT INFORMATION
  Report Type: 
  Country: US (occurrence: US)
  Receive Date: 20120924
  Receipt Date: 20120924
  Transmission Date: 20130627
  Serious: Yes (Other)
  Sender: FDA-Public Use
  Company Number: US-PFIZER INC-2012235116

PATIENT
  Age: 29 Year
  Sex: Female
  Weight: 82.99 kg

DRUGS (6)
  1. EFFEXOR XR [Suspect]
     Indication: MAJOR DEPRESSION
     Dosage: 75 mg, UNK
     Dates: start: 20120801, end: 20120809
  2. EFFEXOR XR [Suspect]
     Dosage: 150 mg, UNK
     Dates: start: 20120810, end: 20120815
  3. EFFEXOR XR [Suspect]
     Dosage: 225 mg, UNK
     Dates: start: 20120816, end: 20120913
  4. EFFEXOR XR [Suspect]
     Dosage: 150 mg, UNK
     Dates: start: 20120914
  5. JOLIVETTE [Concomitant]
     Indication: CONTRACEPTION
     Dosage: UNK
  6. ADDERALL [Concomitant]
     Dosage: UNK

REACTIONS (3)
  - Blood thyroid stimulating hormone increased [Recovering/Resolving]
  - Thyroxine decreased [Not Recovered/Not Resolved]
  - Weight increased [Unknown]
